FAERS Safety Report 5348951-8 (Version None)
Quarter: 2007Q2

REPORT INFORMATION
  Report Type: 
  Country: None (occurrence: None)
  Receive Date: 20070605
  Receipt Date: 20070529
  Transmission Date: 20071010
  Serious: Yes (Death, Hospitalization)
  Sender: FDA-Public Use
  Company Number: 163-21880-06060474

PATIENT
  Age: 83 Year
  Sex: Female

DRUGS (7)
  1. REVLIMID [Suspect]
     Indication: MYELODYSPLASTIC SYNDROME
     Dosage: 10 MG, 2 IN 1 D, ORAL
     Route: 048
     Dates: start: 20060314, end: 20060501
  2. ARANESP [Concomitant]
  3. SYNTHROID [Concomitant]
  4. TOPROL-XL [Concomitant]
  5. FOLIC ACID [Concomitant]
  6. VITAMIN B (VITAMIN B) [Concomitant]
  7. NEUMEGA [Concomitant]

REACTIONS (7)
  - DIARRHOEA [None]
  - DISEASE PROGRESSION [None]
  - GASTROINTESTINAL HAEMORRHAGE [None]
  - MYELODYSPLASTIC SYNDROME [None]
  - PANCYTOPENIA [None]
  - RENAL FAILURE [None]
  - VOMITING [None]
